FAERS Safety Report 4865599-X (Version None)
Quarter: 2005Q4

REPORT INFORMATION
  Report Type: 
  Country: None (occurrence: None)
  Receive Date: 20051220
  Receipt Date: 20051209
  Transmission Date: 20060501
  Serious: Yes (Other)
  Sender: FDA-Public Use
  Company Number: 2005167156

PATIENT
  Sex: Male
  Weight: 92.9874 kg

DRUGS (3)
  1. BEXTRA [Suspect]
     Indication: ARTHRITIS
     Dosage: (1 IN 1 D)
     Dates: start: 20040101
  2. CELEBREX [Suspect]
     Indication: ARTHRITIS
     Dosage: (1 IN 1 D)
     Dates: start: 20040101
  3. TYLENOL ARTHRITIS (PARACETAMOL) [Concomitant]

REACTIONS (16)
  - ARTHRITIS [None]
  - BALANCE DISORDER [None]
  - CONDITION AGGRAVATED [None]
  - DISTURBANCE IN ATTENTION [None]
  - DRUG INEFFECTIVE [None]
  - DYSGRAPHIA [None]
  - FALL [None]
  - FEELING ABNORMAL [None]
  - HEADACHE [None]
  - HYPOACUSIS [None]
  - LOWER LIMB FRACTURE [None]
  - MONOPLEGIA [None]
  - OBSTRUCTION [None]
  - PAIN [None]
  - TREATMENT NONCOMPLIANCE [None]
  - WEIGHT DECREASED [None]
